FAERS Safety Report 8622513-9 (Version None)
Quarter: 2012Q3

REPORT INFORMATION
  Report Type: 
  Country: None (occurrence: None)
  Receive Date: 20120827
  Receipt Date: 20120823
  Transmission Date: 20120928
  Serious: No
  Sender: FDA-Public Use
  Company Number: US-PFIZER INC-2012208581

PATIENT
  Age: 41 Year
  Sex: Male
  Weight: 74.83 kg

DRUGS (1)
  1. CHANTIX [Suspect]
     Indication: SMOKING CESSATION THERAPY
     Dosage: 0.5 MG, DAILY
     Dates: start: 20120814, end: 20120823

REACTIONS (3)
  - DIARRHOEA [None]
  - ABDOMINAL PAIN UPPER [None]
  - ABNORMAL DREAMS [None]
